FAERS Safety Report 8821094 (Version 1)
Quarter: 2012Q4

REPORT INFORMATION
  Report Type: 
  Country: US (occurrence: US)
  Receive Date: 20121002
  Receipt Date: 20121002
  Transmission Date: 20130627
  Serious: Yes (Hospitalization)
  Sender: FDA-Public Use
  Company Number: US-GLAXOSMITHKLINE-A0829303A

PATIENT
  Age: 59 Year
  Sex: Female
  Weight: 81.8 kg

DRUGS (1)
  1. AVANDIA [Suspect]
     Indication: DIABETES MELLITUS
     Dosage: 8MG Per day
     Route: 048
     Dates: start: 2003, end: 20050217

REACTIONS (4)
  - Myocardial infarction [Not Recovered/Not Resolved]
  - Oedema peripheral [Unknown]
  - Cardiac flutter [Unknown]
  - Coronary artery disease [Unknown]
